FAERS Safety Report 6214393-6 (Version None)
Quarter: 2009Q2

REPORT INFORMATION
  Report Type: 
  Country: None (occurrence: None)
  Receive Date: 20090604
  Receipt Date: 20090529
  Transmission Date: 20091009
  Serious: Yes (Death, Hospitalization, Other)
  Sender: FDA-Public Use
  Company Number: US-AMGEN-US346635

PATIENT
  Sex: Male
  Weight: 86.9 kg

DRUGS (17)
  1. NPLATE [Suspect]
     Indication: IDIOPATHIC THROMBOCYTOPENIC PURPURA
     Route: 058
     Dates: start: 20081128, end: 20090128
  2. NPLATE [Suspect]
     Route: 058
     Dates: start: 20081128, end: 20081128
  3. NPLATE [Suspect]
     Route: 058
     Dates: start: 20081205, end: 20081205
  4. NPLATE [Suspect]
     Route: 058
     Dates: start: 20081212, end: 20081212
  5. NPLATE [Suspect]
     Route: 058
     Dates: start: 20081218, end: 20090122
  6. ALBUTEROL [Concomitant]
     Dates: start: 20060418, end: 20090425
  7. ALPRAZOLAM [Concomitant]
     Dates: start: 20070828, end: 20090513
  8. AMLODIPINE [Concomitant]
     Dates: start: 20080108, end: 20090203
  9. FUROSEMIDE [Concomitant]
     Dates: start: 20080710, end: 20090203
  10. LISINOPRIL [Concomitant]
     Dates: start: 20080915, end: 20090425
  11. PRILOSEC [Concomitant]
     Dates: start: 20080904, end: 20090425
  12. PLATELETS [Concomitant]
     Dates: start: 20071221, end: 20090413
  13. RED BLOOD CELLS [Concomitant]
     Dates: start: 20080222, end: 20090413
  14. PREDNISONE [Concomitant]
     Route: 048
  15. PROCRIT [Concomitant]
     Route: 058
     Dates: end: 20090309
  16. UNSPECIFIED ANTIBIOTIC [Concomitant]
  17. BACTRIM DS [Concomitant]
     Route: 048
     Dates: start: 20081212, end: 20081214

REACTIONS (7)
  - ACUTE MYELOID LEUKAEMIA [None]
  - EPISTAXIS [None]
  - HAEMATURIA [None]
  - PNEUMONIA [None]
  - PRODUCTIVE COUGH [None]
  - PYREXIA [None]
  - THROMBOCYTOPENIA [None]
